FAERS Safety Report 8555317-6 (Version None)
Quarter: 2012Q3

REPORT INFORMATION
  Report Type: 
  Country: None (occurrence: None)
  Receive Date: 20120731
  Receipt Date: 20120723
  Transmission Date: 20120928
  Serious: Yes (Other)
  Sender: FDA-Public Use
  Company Number: US-009507513-1207USA009781

PATIENT

DRUGS (6)
  1. ZOCOR [Suspect]
     Dosage: 20 MG, UNK
     Route: 048
  2. PERIPHERAL OPIOID RECEPTOR ANTAGONIST (UNSPECIFIED) [Concomitant]
  3. METHOTREXATE SODIUM [Suspect]
     Dosage: 20 MG, QW
     Route: 058
  4. ACTIQ [Concomitant]
     Dosage: 600 MICROGRAM, QD
     Route: 002
  5. VOLTAREN [Suspect]
     Dosage: 100 MG, QD
     Route: 048
  6. CALCIMAGON [Suspect]
     Dosage: 500 MG, UNK
     Route: 048

REACTIONS (2)
  - WEIGHT DECREASED [None]
  - DIARRHOEA [None]
